FAERS Safety Report 9058495 (Version 1)
Quarter: 2013Q1

REPORT INFORMATION
  Report Type: Spontaneous
  Country: US (occurrence: None)
  Receive Date: 20130205
  Receipt Date: 20130205
  Transmission Date: 20140127
  Serious: Yes (Other)
  Sender: FDA-Public Use
  Company Number: None

PATIENT
  Age: 11 Year
  Sex: Female
  Weight: 84.37 kg

DRUGS (1)
  1. VYVANSE 30MG SHIRE [Suspect]
     Indication: ATTENTION DEFICIT/HYPERACTIVITY DISORDER
     Dates: start: 20110820, end: 20130124

REACTIONS (9)
  - Weight decreased [None]
  - Disturbance in attention [None]
  - Disturbance in attention [None]
  - Amnesia [None]
  - Somnolence [None]
  - Fall [None]
  - Crying [None]
  - Balance disorder [None]
  - Dizziness [None]
